FAERS Safety Report 4966066-5 (Version None)
Quarter: 2006Q2

REPORT INFORMATION
  Report Type: 
  Country: None (occurrence: None)
  Receive Date: 20060407
  Receipt Date: 20051014
  Transmission Date: 20061013
  Serious: Yes (Hospitalization, Other)
  Sender: FDA-Public Use
  Company Number: PHFR2005GB03403

PATIENT
  Sex: Male

DRUGS (1)
  1. TEGRETOL [Suspect]
     Indication: EPILEPSY
     Dosage: 400 MG/DAY
     Route: 065

REACTIONS (4)
  - CONFUSIONAL STATE [None]
  - CONVULSION [None]
  - DRUG LEVEL INCREASED [None]
  - SURGERY [None]
